FAERS Safety Report 25334421 (Version 1)
Quarter: 2025Q2

REPORT INFORMATION
  Report Type: Spontaneous
  Country: US (occurrence: US)
  Receive Date: 20250520
  Receipt Date: 20250520
  Transmission Date: 20250717
  Serious: No
  Sender: AZURITY PHARMACEUTICALS
  Company Number: US-AZURITY PHARMACEUTICALS, INC.-AZR202501-000479

PATIENT
  Age: 15 Year
  Sex: Female

DRUGS (2)
  1. TESTOSTERONE CYPIONATE [Suspect]
     Active Substance: TESTOSTERONE CYPIONATE
     Indication: Hormone replacement therapy
     Dosage: 0.25 MILLILITER, WEEKLY
     Route: 065
     Dates: start: 202402
  2. TESTOSTERONE CYPIONATE [Suspect]
     Active Substance: TESTOSTERONE CYPIONATE
     Route: 065
     Dates: start: 20250127

REACTIONS (3)
  - Increased dose administered [Unknown]
  - Product use issue [Unknown]
  - Product prescribing issue [Unknown]

NARRATIVE: CASE EVENT DATE: 20250127
